FAERS Safety Report 18218271 (Version 1)
Quarter: 2020Q3

REPORT INFORMATION
  Report Type: Spontaneous
  Country: US (occurrence: US)
  Receive Date: 20200831
  Receipt Date: 20200831
  Transmission Date: 20201103
  Serious: No
  Sender: FDA-Public Use
  Company Number: None

PATIENT
  Age: 72 Year
  Sex: Male
  Weight: 96.62 kg

DRUGS (1)
  1. ZOLEDRONIC (ZOLEDRONIC ACID 5MG/BAG INJ , 100ML [Suspect]
     Active Substance: ZOLEDRONIC ACID
     Indication: OSTEOPOROSIS
     Route: 042
     Dates: start: 20191025, end: 20191025

REACTIONS (5)
  - Headache [None]
  - Chills [None]
  - Pyrexia [None]
  - Infusion related reaction [None]
  - Malaise [None]

NARRATIVE: CASE EVENT DATE: 20191026
